FAERS Safety Report 12894643 (Version 2)
Quarter: 2017Q1

REPORT INFORMATION
  Report Type: Spontaneous
  Country: CA (occurrence: CA)
  Receive Date: 20161028
  Receipt Date: 20170120
  Transmission Date: 20170428
  Serious: Yes (Other)
  Sender: FDA-Public Use
  Company Number: CA-SA-2016SA195518

PATIENT
  Age: 59 Year
  Sex: Female

DRUGS (9)
  1. PANTOPRAZOLE SODIUM. [Concomitant]
     Active Substance: PANTOPRAZOLE SODIUM
     Route: 065
  2. TAXOTERE [Suspect]
     Active Substance: DOCETAXEL
     Dosage: DOASGE FORM SOLUTION INTRAVENOUS
     Route: 042
     Dates: start: 2008
  3. TYKERB [Suspect]
     Active Substance: LAPATINIB DITOSYLATE
     Route: 065
     Dates: start: 200306, end: 20140526
  4. XELODA [Suspect]
     Active Substance: CAPECITABINE
     Route: 065
     Dates: start: 200306, end: 20140526
  5. VINORELBINE TARTRATE. [Suspect]
     Active Substance: VINORELBINE TARTRATE
     Indication: BREAST CANCER
     Route: 065
     Dates: start: 20130331, end: 20130613
  6. LORAZEPAM. [Concomitant]
     Active Substance: LORAZEPAM
     Route: 065
  7. TRASTUZUMAB [Suspect]
     Active Substance: TRASTUZUMAB
     Indication: BREAST CANCER
     Route: 065
     Dates: start: 20130331, end: 20130613
  8. VITAMIN B12 [Concomitant]
     Active Substance: CYANOCOBALAMIN
     Route: 065
  9. DOMPERIDONE [Concomitant]
     Active Substance: DOMPERIDONE
     Route: 065

REACTIONS (7)
  - Metastases to liver [Unknown]
  - Pain [Unknown]
  - Breast cancer metastatic [Not Recovered/Not Resolved]
  - Metastasis [Unknown]
  - Peripheral swelling [Unknown]
  - Breast cancer [Unknown]
  - Metastases to lung [Unknown]

NARRATIVE: CASE EVENT DATE: 2008
